FAERS Safety Report 8968610 (Version 2)
Quarter: 2013Q2

REPORT INFORMATION
  Report Type: Spontaneous
  Country: US (occurrence: US)
  Receive Date: 20121218
  Receipt Date: 20130405
  Transmission Date: 20140414
  Serious: No
  Sender: FDA-Public Use
  Company Number: US-BIOGENIDEC-2012BI060324

PATIENT
  Sex: Female

DRUGS (2)
  1. TYSABRI [Suspect]
     Indication: MULTIPLE SCLEROSIS
     Route: 042
     Dates: start: 20090811
  2. ZANEX [Concomitant]
     Indication: PRODUCT USED FOR UNKNOWN INDICATION

REACTIONS (22)
  - Feeling cold [Unknown]
  - Anxiety [Unknown]
  - Panic attack [Unknown]
  - Hypersomnia [Unknown]
  - Dysstasia [Unknown]
  - Mood swings [Unknown]
  - General symptom [Unknown]
  - General physical health deterioration [Unknown]
  - Mental disorder [Unknown]
  - Weight decreased [Unknown]
  - Drug dependence [Unknown]
  - Vertigo [Unknown]
  - Head injury [Unknown]
  - Tremor [Unknown]
  - Blood calcium decreased [Unknown]
  - Frustration [Unknown]
  - Confusional state [Unknown]
  - Pruritus [Unknown]
  - Rash [Unknown]
  - Fatigue [Unknown]
  - Dizziness [Unknown]
  - Chest pain [Unknown]
